FAERS Safety Report 25871141 (Version 1)
Quarter: 2025Q4

REPORT INFORMATION
  Report Type: Spontaneous
  Country: EU (occurrence: EU)
  Receive Date: 20251001
  Receipt Date: 20251001
  Transmission Date: 20260118
  Serious: Yes (Other)
  Sender: BAUSCH AND LOMB
  Company Number: EU-BAUSCH-BH-2025-017882

PATIENT
  Sex: Female

DRUGS (3)
  1. RIFAXIMIN [Suspect]
     Active Substance: RIFAXIMIN
     Indication: Diarrhoea
     Dosage: 1 TABLET EVERY 12 HOURS
     Route: 065
     Dates: start: 20250912
  2. TEGRETOL [Interacting]
     Active Substance: CARBAMAZEPINE
     Indication: Epilepsy
     Route: 065
  3. KEPPRA [Interacting]
     Active Substance: LEVETIRACETAM
     Indication: Product used for unknown indication
     Route: 065

REACTIONS (4)
  - Atrial fibrillation [Unknown]
  - Drug interaction [Unknown]
  - Essential hypertension [Unknown]
  - Headache [Recovered/Resolved]

NARRATIVE: CASE EVENT DATE: 20250101
